FAERS Safety Report 9830905 (Version 1)
Quarter: 2014Q1

REPORT INFORMATION
  Report Type: Report from Study
  Country: DE (occurrence: DE)
  Receive Date: 20140120
  Receipt Date: 20140120
  Transmission Date: 20141002
  Serious: Yes (Hospitalization)
  Sender: FDA-Public Use
  Company Number: PHHY2014DE004718

PATIENT
  Sex: Female

DRUGS (5)
  1. FTY 720 [Suspect]
     Indication: MULTIPLE SCLEROSIS
     Dosage: 0.5 MG, QD
     Route: 048
     Dates: start: 20120112, end: 20130819
  2. DELIX [Concomitant]
     Dosage: 5 MG, QD
  3. AMLODIPINE [Concomitant]
     Dosage: 5 MG, QD
  4. CLONIDINE [Concomitant]
     Dosage: 225 UG, QD
  5. DELIX PLUS [Concomitant]
     Dosage: 5 MG, QD

REACTIONS (1)
  - Hypertensive crisis [Recovered/Resolved]
